FAERS Safety Report 5868294-3 (Version None)
Quarter: 2008Q3

REPORT INFORMATION
  Report Type: 
  Country: None (occurrence: None)
  Receive Date: 20080903
  Receipt Date: 20080809
  Transmission Date: 20090109
  Serious: Yes (Hospitalization, Other)
  Sender: FDA-Public Use
  Company Number: US-RB-003754-08

PATIENT
  Age: 17 Year
  Sex: Male
  Weight: 69.69 kg

DRUGS (2)
  1. MUCINEX (UNSPECIFIED) [Suspect]
     Route: 048
     Dates: start: 20080808
  2. ZYPREXA [Concomitant]

REACTIONS (2)
  - DEPRESSED LEVEL OF CONSCIOUSNESS [None]
  - OVERDOSE [None]
